FAERS Safety Report 4461843-1 (Version None)
Quarter: 2004Q3

REPORT INFORMATION
  Report Type: 
  Country: None (occurrence: None)
  Receive Date: 20040929
  Receipt Date: 20031030
  Transmission Date: 20050211
  Serious: No
  Sender: FDA-Public Use
  Company Number: US-GLAXOSMITHKLINE-A0432273A

PATIENT
  Age: 71 Year
  Sex: Male
  Weight: 90.9 kg

DRUGS (1)
  1. SEREVENT [Suspect]
     Indication: ASTHMA
     Route: 055
     Dates: start: 20030901, end: 20031001

REACTIONS (1)
  - DRUG INEFFECTIVE [None]
